FAERS Safety Report 4735147-3 (Version None)
Quarter: 2005Q3

REPORT INFORMATION
  Report Type: 
  Country: None (occurrence: None)
  Receive Date: 20050804
  Receipt Date: 20050715
  Transmission Date: 20060218
  Serious: Yes (Hospitalization, Other)
  Sender: FDA-Public Use
  Company Number: USA0507102957

PATIENT
  Age: 42 Year
  Sex: Male

DRUGS (3)
  1. CYMBALTA [Suspect]
     Indication: DEPRESSION
     Dosage: 60 MG DAY
     Dates: end: 20050701
  2. ZOCOR [Concomitant]
  3. INSULIN  /00646001/(INSULIN HUMAN) [Concomitant]

REACTIONS (1)
  - HEPATIC ENZYME INCREASED [None]
